FAERS Safety Report 5235868-2 (Version None)
Quarter: 2007Q1

REPORT INFORMATION
  Report Type: 
  Country: None (occurrence: None)
  Receive Date: 20061208
  Receipt Date: 20060104
  Transmission Date: 20070707
  Serious: Yes (Other)
  Sender: FDA-Public Use
  Company Number: 2006UW00173

PATIENT
  Sex: Male

DRUGS (9)
  1. CRESTOR [Suspect]
  2. ZETIA [Concomitant]
  3. AMARYL [Concomitant]
  4. ASPIRIN [Concomitant]
  5. FENTANYL [Concomitant]
  6. MAG-OX [Concomitant]
  7. METFORMIN HCL [Concomitant]
  8. METOPROLOL SUCCINATE [Concomitant]
  9. RANITIDINE [Concomitant]

REACTIONS (1)
  - CONFUSIONAL STATE [None]
